FAERS Safety Report 7891437-7 (Version None)
Quarter: 2011Q4

REPORT INFORMATION
  Report Type: 
  Country: None (occurrence: None)
  Receive Date: 20111103
  Receipt Date: 20110803
  Transmission Date: 20120403
  Serious: No
  Sender: FDA-Public Use
  Company Number: US-AMGEN-USASP2011039355

PATIENT
  Sex: Female

DRUGS (1)
  1. ENBREL [Suspect]
     Indication: RHEUMATOID ARTHRITIS
     Dosage: 50 MG, QWK
     Dates: start: 20101101, end: 20110704

REACTIONS (6)
  - FLUSHING [None]
  - PAIN [None]
  - DYSPNOEA [None]
  - INCREASED APPETITE [None]
  - ALOPECIA [None]
  - RHEUMATOID ARTHRITIS [None]
